FAERS Safety Report 14164531 (Version 1)
Quarter: 2017Q4

REPORT INFORMATION
  Report Type: Spontaneous
  Country: GB (occurrence: GB)
  Receive Date: 20171107
  Receipt Date: 20171107
  Transmission Date: 20180321
  Serious: Yes (Death)
  Sender: FDA-Public Use
  Company Number: GB-PFIZER INC-2017478638

PATIENT
  Age: 41 Year
  Sex: Male

DRUGS (1)
  1. CRIZOTINIB [Suspect]
     Active Substance: CRIZOTINIB
     Indication: METASTASES TO CENTRAL NERVOUS SYSTEM
     Dosage: UNK
     Dates: start: 201511, end: 201707

REACTIONS (3)
  - Neoplasm progression [Unknown]
  - Dizziness [Unknown]
  - Death [Fatal]

NARRATIVE: CASE EVENT DATE: 201706
